FAERS Safety Report 9207934 (Version 1)
Quarter: 2013Q2

REPORT INFORMATION
  Report Type: Spontaneous
  Country: US (occurrence: US)
  Receive Date: 20130403
  Receipt Date: 20130403
  Transmission Date: 20140414
  Serious: Yes (Hospitalization, Other)
  Sender: FDA-Public Use
  Company Number: US-009507513-2009SP021080

PATIENT
  Sex: Female
  Weight: 86.18 kg

DRUGS (3)
  1. NUVARING [Suspect]
     Indication: CONTRACEPTION
     Dosage: 1 DF, UNK
     Route: 067
     Dates: start: 200707, end: 20070802
  2. ACYCLOVIR [Concomitant]
     Indication: HERPES SIMPLEX
     Dosage: 400 MG, BID
  3. ESTROGENS, CONJUGATED [Concomitant]
     Indication: PRODUCT USED FOR UNKNOWN INDICATION
     Dosage: 0.625 MG, QD

REACTIONS (3)
  - Thrombotic stroke [Recovered/Resolved]
  - Multiple sclerosis [Unknown]
  - Urinary tract infection [Unknown]
